FAERS Safety Report 18595736 (Version 1)
Quarter: 2020Q4

REPORT INFORMATION
  Report Type: Spontaneous
  Country: US (occurrence: US)
  Receive Date: 20201209
  Receipt Date: 20201209
  Transmission Date: 20210114
  Serious: Yes (Hospitalization)
  Sender: FDA-Public Use
  Company Number: None

PATIENT
  Sex: Female

DRUGS (11)
  1. VITAMIN D3 [Concomitant]
     Active Substance: CHOLECALCIFEROL
  2. SILDENAFIL 20MG TAB [Suspect]
     Active Substance: SILDENAFIL
     Indication: COR PULMONALE
     Route: 048
  3. METFORMIN [Concomitant]
     Active Substance: METFORMIN HYDROCHLORIDE
  4. FUROSEMIDE. [Concomitant]
     Active Substance: FUROSEMIDE
  5. MEDROXYPR AC [Concomitant]
  6. FOLIC ACID. [Concomitant]
     Active Substance: FOLIC ACID
  7. POTASSIUM [Concomitant]
     Active Substance: POTASSIUM
  8. SODIUM CHLOR NEB 3% [Concomitant]
  9. SPIRONOLACT [Concomitant]
     Active Substance: SPIRONOLACTONE
  10. VITAMIN C [Concomitant]
     Active Substance: ASCORBIC ACID
  11. FERROUS SULF [Concomitant]
     Active Substance: FERROUS SULFATE

REACTIONS (1)
  - Lung disorder [None]
